FAERS Safety Report 19632933 (Version 4)
Quarter: 2021Q3

REPORT INFORMATION
  Report Type: Spontaneous
  Country: CA (occurrence: CA)
  Receive Date: 20210730
  Receipt Date: 20210920
  Transmission Date: 20211014
  Serious: Yes (Other)
  Sender: FDA-Public Use
  Company Number: CA-CELLTRION INC.-2020CA023852

PATIENT

DRUGS (23)
  1. INFLECTRA [Suspect]
     Active Substance: INFLIXIMAB-DYYB
     Dosage: 1000 MG (10 MG/KG) EVERY 4 WEEKS
     Route: 042
     Dates: start: 20210715
  2. INFLECTRA [Suspect]
     Active Substance: INFLIXIMAB-DYYB
     Dosage: 10 MG/KG AT WEEK 0, 2, 6 WEEKS, THEN 5 MG/KG EVERY 8 WEEKS
     Route: 042
     Dates: start: 20200805
  3. INFLECTRA [Suspect]
     Active Substance: INFLIXIMAB-DYYB
     Dosage: 1000 MG (10 MG/KG) EVERY 4 WEEKS
     Route: 042
     Dates: start: 20210715
  4. CORTISONE [Concomitant]
     Active Substance: CORTISONE
     Dosage: TAPERING DOWN
     Dates: start: 20200606
  5. ZOPICLONE [Concomitant]
     Active Substance: ZOPICLONE
     Dosage: UNK
     Route: 065
  6. INFLECTRA [Suspect]
     Active Substance: INFLIXIMAB-DYYB
     Dosage: 10 MG/KG AT WEEK 0, 2, 6 WEEKS, THEN 5 MG/KG EVERY 8 WEEKS
     Route: 042
     Dates: start: 20210422
  7. VITAMIN D [COLECALCIFEROL] [Concomitant]
     Active Substance: CHOLECALCIFEROL
     Dosage: UNK
     Route: 048
  8. INFLECTRA [Suspect]
     Active Substance: INFLIXIMAB-DYYB
     Indication: COLITIS ULCERATIVE
     Dosage: 500 MG AT 0, 2, 6 WEEKS, THEN EVERY 8 WEEKS
     Route: 042
     Dates: start: 20200623
  9. INFLECTRA [Suspect]
     Active Substance: INFLIXIMAB-DYYB
     Dosage: 10 MG/KG AT WEEK (1000 MG) 0, 2, 6 WEEKS, THEN 5 MG/KG EVERY 8 WEEKS
     Route: 042
     Dates: start: 20200717, end: 20210617
  10. INFLECTRA [Suspect]
     Active Substance: INFLIXIMAB-DYYB
     Dosage: 10 MG/KG AT WEEK 0, 2, 6 WEEKS, THEN 5 MG/KG EVERY 8 WEEKS
     Route: 042
     Dates: start: 20201231
  11. INFLECTRA [Suspect]
     Active Substance: INFLIXIMAB-DYYB
     Indication: CROHN^S DISEASE
     Dosage: 500 MG AT 0, 2, 6 WEEKS, THEN EVERY 8 WEEKS
     Route: 042
     Dates: start: 20200608, end: 20200623
  12. INFLECTRA [Suspect]
     Active Substance: INFLIXIMAB-DYYB
     Dosage: 10 MG/KG AT WEEK 0, 2, 6 WEEKS, THEN 5 MG/KG EVERY 8 WEEKS
     Route: 042
     Dates: start: 20210225
  13. INFLECTRA [Suspect]
     Active Substance: INFLIXIMAB-DYYB
     Dosage: 10 MG/KG (1000 MG)
     Route: 042
     Dates: start: 20210715
  14. INFLECTRA [Suspect]
     Active Substance: INFLIXIMAB-DYYB
     Dosage: 1000 MG (10 MG/KG) EVERY 4 WEEKS
     Route: 042
     Dates: start: 20210812
  15. INFLECTRA [Suspect]
     Active Substance: INFLIXIMAB-DYYB
     Dosage: 1000 MG (10 MG/KG) EVERY 4 WEEKS
     Route: 042
     Dates: start: 20210909
  16. PREDNISONE. [Concomitant]
     Active Substance: PREDNISONE
     Dosage: UNK
     Route: 065
     Dates: start: 2020
  17. MORPHINE [Concomitant]
     Active Substance: MORPHINE
     Dosage: AS NEEDED (PRN)
     Route: 048
  18. TRAZODONE [Concomitant]
     Active Substance: TRAZODONE HYDROCHLORIDE
     Dosage: UNK
  19. INFLECTRA [Suspect]
     Active Substance: INFLIXIMAB-DYYB
     Dosage: 10 MG/KG AT WEEK 0, 2, 6 WEEKS, THEN 5 MG/KG EVERY 8 WEEKS
     Route: 042
     Dates: start: 20200918
  20. INFLECTRA [Suspect]
     Active Substance: INFLIXIMAB-DYYB
     Dosage: 10 MG/KG AT WEEK 0, 2, 6 WEEKS, THEN 5 MG/KG EVERY 8 WEEKS
     Route: 042
     Dates: start: 20210617
  21. DICYCLOMINE [Concomitant]
     Active Substance: DICYCLOMINE HYDROCHLORIDE
     Dosage: 10 MG, AS NEEDED (PRN)
     Route: 048
  22. INFLECTRA [Suspect]
     Active Substance: INFLIXIMAB-DYYB
     Dosage: 10 MG/KG (1000 MG)
     Route: 042
     Dates: start: 20210715
  23. CALCIUM [Concomitant]
     Active Substance: CALCIUM
     Dosage: UNK
     Route: 048

REACTIONS (18)
  - Drug ineffective [Recovering/Resolving]
  - Anxiety [Unknown]
  - Headache [Recovering/Resolving]
  - Therapeutic response shortened [Unknown]
  - Condition aggravated [Recovering/Resolving]
  - Stress [Unknown]
  - Heart rate increased [Unknown]
  - Drug level decreased [Unknown]
  - Mouth ulceration [Unknown]
  - Inappropriate schedule of product administration [Unknown]
  - Condition aggravated [Unknown]
  - Migraine [Unknown]
  - Fatigue [Not Recovered/Not Resolved]
  - Off label use [Unknown]
  - Gastrointestinal disorder [Unknown]
  - Insomnia [Not Recovered/Not Resolved]
  - Arthralgia [Unknown]
  - Anal fissure [Unknown]

NARRATIVE: CASE EVENT DATE: 20200628
